FAERS Safety Report 25356821 (Version 1)
Quarter: 2025Q2

REPORT INFORMATION
  Report Type: Report from Study
  Country: JP (occurrence: JP)
  Receive Date: 20250526
  Receipt Date: 20250526
  Transmission Date: 20250716
  Serious: Yes (Hospitalization)
  Sender: JOHNSON AND JOHNSON
  Company Number: JP-JNJFOC-20241142289

PATIENT
  Age: 77 Year
  Sex: Male

DRUGS (2)
  1. ERLEADA [Suspect]
     Active Substance: APALUTAMIDE
     Indication: Prostate cancer metastatic
     Route: 048
     Dates: start: 20241102, end: 20241109
  2. ERLEADA [Suspect]
     Active Substance: APALUTAMIDE
     Route: 048
     Dates: start: 20241110, end: 20250117

REACTIONS (12)
  - Pruritus [Recovering/Resolving]
  - Erythema [Recovering/Resolving]
  - Eczema [Recovering/Resolving]
  - Skin swelling [Recovering/Resolving]
  - Injected limb mobility decreased [Not Recovered/Not Resolved]
  - Rash [Recovered/Resolved]
  - Scratch [Not Recovered/Not Resolved]
  - Scab [Not Recovered/Not Resolved]
  - Feeling hot [Not Recovered/Not Resolved]
  - Chills [Not Recovered/Not Resolved]
  - Skin exfoliation [Not Recovered/Not Resolved]
  - Oedema peripheral [Recovering/Resolving]

NARRATIVE: CASE EVENT DATE: 20240101
